FAERS Safety Report 12089183 (Version 1)
Quarter: 2016Q1

REPORT INFORMATION
  Report Type: Spontaneous
  Country: US (occurrence: None)
  Receive Date: 20160217
  Receipt Date: 20160217
  Transmission Date: 20160526
  Serious: Yes (Life-Threatening, Disabling)
  Sender: FDA-Public Use
  Company Number: None

PATIENT
  Age: 63 Year
  Sex: Male
  Weight: 83.92 kg

DRUGS (2)
  1. LYRICA [Concomitant]
     Active Substance: PREGABALIN
  2. ARMOUR THYROID [Suspect]
     Active Substance: THYROID, PORCINE
     Indication: HYPOTHYROIDISM
     Dosage: 1 PILL IN AM ONCE DAILY TAKEN BY MOUTH
     Route: 048

REACTIONS (9)
  - Crying [None]
  - Feeling cold [None]
  - Thyroid disorder [None]
  - Gait disturbance [None]
  - Product tampering [None]
  - Feeling abnormal [None]
  - Product substitution issue [None]
  - Myalgia [None]
  - Product odour abnormal [None]

NARRATIVE: CASE EVENT DATE: 20160216
